FAERS Safety Report 7186781-5 (Version None)
Quarter: 2010Q4

REPORT INFORMATION
  Report Type: 
  Country: None (occurrence: None)
  Receive Date: 20101222
  Receipt Date: 20101213
  Transmission Date: 20110411
  Serious: Yes (Congenital Anomaly)
  Sender: FDA-Public Use
  Company Number: A0680692A

PATIENT
  Sex: Female
  Weight: 2.3 kg

DRUGS (16)
  1. PAXIL [Suspect]
     Indication: DEPRESSION
     Dosage: 20MG PER DAY
     Dates: start: 20010101, end: 20050101
  2. PAXIL CR [Suspect]
     Indication: DEPRESSION
     Dosage: 25MG PER DAY
     Dates: start: 20041101, end: 20041201
  3. PRENATAL VITAMINS [Concomitant]
  4. PROVERA [Concomitant]
     Dates: start: 20040429, end: 20040501
  5. FOLIC ACID [Concomitant]
  6. METFORMIN [Concomitant]
     Dates: start: 20040315
  7. IRON [Concomitant]
  8. REGLAN [Concomitant]
     Dates: start: 20040629
  9. COMPAZINE [Concomitant]
     Dates: start: 20040629, end: 20040721
  10. SEPTRA [Concomitant]
     Dates: start: 20040802
  11. PHENAZOPYRIDINE HCL TAB [Concomitant]
     Dates: start: 20040820
  12. KEFLEX [Concomitant]
     Dates: start: 20040820, end: 20040101
  13. BENADRYL [Concomitant]
     Dates: start: 20040930
  14. ZOFRAN [Concomitant]
     Dates: start: 20041007
  15. PROPRANOLOL [Concomitant]
     Dates: start: 20040921, end: 20040925
  16. WELLBUTRIN [Concomitant]

REACTIONS (6)
  - CAESAREAN SECTION [None]
  - DRUG EXPOSURE DURING PREGNANCY [None]
  - MATERNAL DRUGS AFFECTING FOETUS [None]
  - PULMONARY VALVE STENOSIS [None]
  - VENTRICULAR HYPERTROPHY [None]
  - VENTRICULAR SEPTAL DEFECT [None]
